FAERS Safety Report 7591996-8 (Version None)
Quarter: 2011Q2

REPORT INFORMATION
  Report Type: 
  Country: None (occurrence: None)
  Receive Date: 20110627
  Receipt Date: 20110613
  Transmission Date: 20111010
  Serious: Yes (Hospitalization)
  Sender: FDA-Public Use
  Company Number: 2011MA007150

PATIENT
  Age: 82 Year
  Sex: Male

DRUGS (5)
  1. PERGOLIDE [Concomitant]
  2. SELEGILINE [Concomitant]
  3. CARBIDOPA [Concomitant]
  4. HALOPERIDOL LACTATE [Suspect]
  5. LEVODOPA [Concomitant]

REACTIONS (9)
  - AGITATION [None]
  - RENAL IMPAIRMENT [None]
  - BLOOD CALCIUM DECREASED [None]
  - DIZZINESS [None]
  - RASH [None]
  - HYPERCALCAEMIA [None]
  - HYPOTENSION [None]
  - PANCREATITIS [None]
  - DELIRIUM [None]
